FAERS Safety Report 9213063 (Version 1)
Quarter: 2013Q1

REPORT INFORMATION
  Report Type: Spontaneous
  Country: US (occurrence: None)
  Receive Date: 20120820
  Receipt Date: 20120820
  Transmission Date: 20140127
  Serious: No
  Sender: FDA-Public Use
  Company Number: 1000036875

PATIENT
  Sex: Female

DRUGS (1)
  1. VIIBRYD (VILAZODONE) (TABLETS) [Suspect]
     Dosage: 10 MG 1 IN 1 D

REACTIONS (1)
  - Dermatitis contact [None]
